FAERS Safety Report 21839077 (Version 5)
Quarter: 2023Q2

REPORT INFORMATION
  Report Type: Report from Study
  Country: US (occurrence: US)
  Receive Date: 20230109
  Receipt Date: 20230616
  Transmission Date: 20230722
  Serious: Yes (Hospitalization, Other)
  Sender: FDA-Public Use
  Company Number: US-UCBSA-2023000695

PATIENT
  Age: 64 Year
  Sex: Male

DRUGS (4)
  1. CERTOLIZUMAB PEGOL [Suspect]
     Active Substance: CERTOLIZUMAB PEGOL
     Indication: Psoriasis
     Dosage: 200 MILLIGRAM, EV 2 WEEKS(QOW)
     Dates: start: 2021, end: 202208
  2. CERTOLIZUMAB PEGOL [Suspect]
     Active Substance: CERTOLIZUMAB PEGOL
     Dosage: 1 INJ Q2WEEKS
     Dates: start: 20230107
  3. CERTOLIZUMAB PEGOL [Suspect]
     Active Substance: CERTOLIZUMAB PEGOL
     Dosage: UNK
     Dates: start: 202301
  4. CERTOLIZUMAB PEGOL [Suspect]
     Active Substance: CERTOLIZUMAB PEGOL
     Dosage: 200 MILLIGRAM, EV 2 WEEKS(QOW)
     Route: 058
     Dates: start: 20230107

REACTIONS (5)
  - Limb discomfort [Not Recovered/Not Resolved]
  - Spinal operation [Not Recovered/Not Resolved]
  - Psoriasis [Not Recovered/Not Resolved]
  - Insurance issue [Unknown]
  - Inappropriate schedule of product administration [Unknown]

NARRATIVE: CASE EVENT DATE: 20220801
